FAERS Safety Report 7551277-5 (Version None)
Quarter: 2011Q2

REPORT INFORMATION
  Report Type: 
  Country: None (occurrence: None)
  Receive Date: 20110616
  Receipt Date: 20110612
  Transmission Date: 20111010
  Serious: Yes (Death, Other)
  Sender: FDA-Public Use
  Company Number: PHHY2011CZ51980

PATIENT
  Sex: Female

DRUGS (4)
  1. ZOMETA [Suspect]
     Indication: METASTASES TO BONE
     Dosage: UNK
     Dates: start: 20081030
  2. FENTANYL-100 [Concomitant]
     Route: 062
  3. ANODYNE [Concomitant]
     Route: 048
  4. NSAID'S [Concomitant]

REACTIONS (2)
  - DEATH [None]
  - SPINAL COMPRESSION FRACTURE [None]
